FAERS Safety Report 7191190-9 (Version None)
Quarter: 2010Q4

REPORT INFORMATION
  Report Type: 
  Country: None (occurrence: None)
  Receive Date: 20101221
  Receipt Date: 20101221
  Transmission Date: 20110411
  Serious: Yes (Other)
  Sender: FDA-Public Use
  Company Number: None

PATIENT
  Sex: Male
  Weight: 72.5755 kg

DRUGS (1)
  1. DARVOCET [Suspect]
     Indication: ANALGESIC THERAPY
     Dosage: 800 MG
     Dates: start: 20100201, end: 20101201

REACTIONS (7)
  - ABDOMINAL PAIN [None]
  - ABDOMINAL PAIN UPPER [None]
  - CONDITION AGGRAVATED [None]
  - DRUG INEFFECTIVE [None]
  - DYSURIA [None]
  - PAIN [None]
  - PAINFUL DEFAECATION [None]
